FAERS Safety Report 8770014 (Version 1)
Quarter: 2012Q4

REPORT INFORMATION
  Report Type: 
  Country: US (occurrence: US)
  Receive Date: 20120905
  Receipt Date: 20120905
  Transmission Date: 20130627
  Serious: No
  Sender: FDA-Public Use
  Company Number: US-BAYER-2012-089902

PATIENT
  Sex: Female
  Weight: 52.15 kg

DRUGS (7)
  1. BETASERON [Suspect]
     Dosage: 0.3 mg
     Route: 058
  2. CYMBALTA [Concomitant]
     Dosage: 20 mg
  3. SYNTHROID [Concomitant]
     Dosage: 100 mcg
  4. BACLOFEN [Concomitant]
     Dosage: 10 mg
  5. WELLBUTRIN [Concomitant]
     Dosage: 100 mg
  6. PROVIGIL [Concomitant]
     Dosage: 100 mg
  7. CONCERTA [Concomitant]
     Dosage: 18 mg

REACTIONS (4)
  - Balance disorder [None]
  - Dizziness [None]
  - Vertigo [None]
  - Fall [None]
